FAERS Safety Report 9194168 (Version 6)
Quarter: 2014Q1

REPORT INFORMATION
  Report Type: Spontaneous
  Country: FR (occurrence: FR)
  Receive Date: 20130327
  Receipt Date: 20140217
  Transmission Date: 20141002
  Serious: Yes (Disabling)
  Sender: FDA-Public Use
  Company Number: PHHY2013FR020498

PATIENT
  Age: 79 Year
  Sex: Female

DRUGS (10)
  1. SANDOSTATIN LAR [Suspect]
     Indication: NEUROENDOCRINE TUMOUR
     Dosage: 30 MG, ONCE MONTHLY
     Route: 030
     Dates: start: 20121207
  2. MORPHINE [Concomitant]
     Indication: CANCER PAIN
     Dosage: 30 MG, QD
     Route: 048
  3. JANUVIA [Concomitant]
     Indication: DIABETES MELLITUS
     Dosage: 1 DF, QD
     Route: 048
  4. TANGANIL [Concomitant]
     Indication: VERTIGO
     Dosage: UNK UKN, UNK
  5. LEXOMIL [Concomitant]
     Indication: DEPRESSION
     Dosage: 0.75 DF, QD
     Route: 048
  6. IXPRIM [Concomitant]
     Dosage: UNK UKN, UNK
  7. INEXIUM//ESOMEPRAZOLE MAGNESIUM [Concomitant]
     Dosage: 40 MG, QD
     Route: 048
  8. PREVISCAN [Concomitant]
     Dosage: 0.75 UNK, UNK
     Route: 048
  9. EMLA                               /00675501/ [Concomitant]
     Indication: PROPHYLAXIS
     Dosage: UNK
  10. SKENAN [Concomitant]
     Dosage: UNK UKN, UNK

REACTIONS (10)
  - Hemiplegia [Recovered/Resolved]
  - Injection site pain [Recovered/Resolved]
  - Pain [Recovered/Resolved]
  - Movement disorder [Recovered/Resolved]
  - Visual acuity reduced [Recovered/Resolved]
  - Product reconstitution issue [Unknown]
  - Drug administration error [Unknown]
  - Incorrect dose administered [Unknown]
  - Fatigue [Not Recovered/Not Resolved]
  - Injection site hypoaesthesia [Recovered/Resolved]
